FAERS Safety Report 23328938 (Version 1)
Quarter: 2023Q4

REPORT INFORMATION
  Report Type: Spontaneous
  Country: ES (occurrence: ES)
  Receive Date: 20231222
  Receipt Date: 20231222
  Transmission Date: 20240109
  Serious: Yes (Hospitalization)
  Sender: FDA-Public Use
  Company Number: ES-VALIDUS PHARMACEUTICALS LLC-ES-VDP-2023-019056

PATIENT

DRUGS (3)
  1. ROCALTROL [Suspect]
     Active Substance: CALCITRIOL
     Indication: Post procedural hypoparathyroidism
     Dosage: 0.25 MICROGRAM, Q12H
     Route: 048
     Dates: start: 20230922, end: 20230928
  2. ROCALTROL [Suspect]
     Active Substance: CALCITRIOL
     Dosage: 0.5 MICROGRAM, Q12H, 1-0-1
     Route: 048
     Dates: start: 20230922, end: 20230928
  3. CALCIUM CARBONATE\CHOLECALCIFEROL [Concomitant]
     Active Substance: CALCIUM CARBONATE\CHOLECALCIFEROL
     Indication: Post procedural hypoparathyroidism
     Dosage: CALCIO CARBONATO 500MG 1-1-1.
     Route: 048
     Dates: start: 20230922, end: 20230928

REACTIONS (2)
  - Hypercalcaemia [Recovered/Resolved]
  - Product dispensing error [Recovered/Resolved]

NARRATIVE: CASE EVENT DATE: 20230922
